FAERS Safety Report 5033391-1 (Version None)
Quarter: 2006Q2

REPORT INFORMATION
  Report Type: 
  Country: None (occurrence: None)
  Receive Date: 20060623
  Receipt Date: 20060615
  Transmission Date: 20061013
  Serious: Yes (Life-Threatening, Hospitalization)
  Sender: FDA-Public Use
  Company Number: FR-JNJFOC-20060603552

PATIENT
  Age: 21 Year
  Sex: Female

DRUGS (12)
  1. RISPERDAL [Suspect]
     Indication: DRUG USE FOR UNKNOWN INDICATION
     Route: 048
  2. SEROPRAM [Suspect]
     Indication: DRUG USE FOR UNKNOWN INDICATION
     Route: 048
  3. LOXAPAC [Suspect]
     Indication: DRUG USE FOR UNKNOWN INDICATION
     Route: 048
  4. ATARAX [Suspect]
     Indication: DRUG USE FOR UNKNOWN INDICATION
     Route: 048
  5. SERESTA [Suspect]
     Indication: DRUG USE FOR UNKNOWN INDICATION
     Route: 048
  6. LAMICTAL [Suspect]
     Indication: DRUG USE FOR UNKNOWN INDICATION
     Route: 048
  7. CERAZETTE [Concomitant]
  8. MOTILIUM [Concomitant]
  9. VALIUM [Concomitant]
  10. MEPRONIZINE [Concomitant]
  11. MEPRONIZINE [Concomitant]
  12. DUPHALAC [Concomitant]

REACTIONS (3)
  - CARDIAC FAILURE [None]
  - COMA [None]
  - HEPATITIS ACUTE [None]
